FAERS Safety Report 7495082-7 (Version None)
Quarter: 2011Q2

REPORT INFORMATION
  Report Type: 
  Country: None (occurrence: None)
  Receive Date: 20110520
  Receipt Date: 20110512
  Transmission Date: 20111010
  Serious: Yes (Hospitalization)
  Sender: FDA-Public Use
  Company Number: FR-GENENTECH-319054

PATIENT
  Sex: Male
  Weight: 78 kg

DRUGS (11)
  1. OMEPRAZOLE [Concomitant]
     Indication: PROPHYLAXIS
     Dosage: UNK
     Route: 048
     Dates: start: 20090915
  2. BARACLUDE [Concomitant]
     Indication: ANTIVIRAL TREATMENT
     Dosage: UNK
     Route: 048
     Dates: start: 20091008
  3. RITUXIMAB [Suspect]
     Indication: MANTLE CELL LYMPHOMA
     Dosage: 700 MG, Q21D
     Route: 042
     Dates: start: 20090918, end: 20091130
  4. LEDERFOLINE [Concomitant]
     Indication: PROPHYLAXIS
     Dosage: UNK
     Route: 048
     Dates: start: 20090920
  5. CYTARABINE [Suspect]
     Indication: MANTLE CELL LYMPHOMA
     Dosage: 4 G, Q21D
     Route: 042
     Dates: start: 20090915, end: 20091201
  6. PRAVASTATIN [Concomitant]
     Indication: HYPERCHOLESTEROLAEMIA
     Dosage: UNK
     Route: 048
     Dates: start: 20090913
  7. BACTRIM [Concomitant]
     Indication: INFECTION PROPHYLAXIS
     Dosage: UNK
     Route: 048
     Dates: start: 20090920
  8. ATOVAQUONE [Concomitant]
     Indication: ANTIBIOTIC PROPHYLAXIS
     Dosage: UNK
     Route: 048
     Dates: start: 20091012
  9. SOTALOL HCL [Concomitant]
     Indication: ATRIAL FIBRILLATION
     Dosage: UNK
     Dates: start: 20091001
  10. CISPLATIN [Suspect]
     Indication: MANTLE CELL LYMPHOMA
     Dosage: 200 MG, Q21D
     Route: 042
     Dates: start: 20090914, end: 20091130
  11. DEXAMETHASONE [Suspect]
     Indication: MANTLE CELL LYMPHOMA
     Dosage: 40 MG, UNK
     Route: 042
     Dates: start: 20090914, end: 20091203

REACTIONS (2)
  - HEMIANOPIA [None]
  - ISCHAEMIC STROKE [None]
